FAERS Safety Report 9435181 (Version 1)
Quarter: 2013Q3

REPORT INFORMATION
  Report Type: Spontaneous
  Country: US (occurrence: US)
  Receive Date: 20130801
  Receipt Date: 20130801
  Transmission Date: 20140515
  Serious: No
  Sender: FDA-Public Use
  Company Number: US-009507513-2011SP028224

PATIENT
  Age: 32 Year
  Sex: Female
  Weight: 45.81 kg

DRUGS (1)
  1. NUVARING [Suspect]
     Indication: CONTRACEPTION
     Route: 067
     Dates: start: 2010

REACTIONS (1)
  - Device expulsion [Recovered/Resolved]
